FAERS Safety Report 5228978-7 (Version None)
Quarter: 2007Q1

REPORT INFORMATION
  Report Type: 
  Country: None (occurrence: None)
  Receive Date: 20061201
  Receipt Date: 20060811
  Transmission Date: 20070707
  Serious: No
  Sender: FDA-Public Use
  Company Number: US200607000875

PATIENT
  Age: 57 Year
  Sex: Female
  Weight: 84.8 kg

DRUGS (4)
  1. CYMBALTA [Suspect]
     Indication: PARAESTHESIA
     Dosage: SEE IMAGE
     Dates: end: 20060628
  2. CYMBALTA [Suspect]
     Indication: PARAESTHESIA
     Dosage: SEE IMAGE
     Dates: start: 20060501
  3. PREMPRO [Concomitant]
  4. XANAX [Concomitant]

REACTIONS (3)
  - DRUG WITHDRAWAL SYNDROME [None]
  - FEELING ABNORMAL [None]
  - PARAESTHESIA [None]
